FAERS Safety Report 8476269-3 (Version None)
Quarter: 2012Q2

REPORT INFORMATION
  Report Type: 
  Country: None (occurrence: None)
  Receive Date: 20120619
  Receipt Date: 20120608
  Transmission Date: 20120825
  Serious: Yes (Other)
  Sender: FDA-Public Use
  Company Number: DSA_57908_2012

PATIENT

DRUGS (4)
  1. OXALIPLATIN [Suspect]
     Indication: METASTASES TO LIVER
     Dosage: (DF)
  2. FLUOROURACIL [Suspect]
     Indication: METASTASES TO LIVER
     Dosage: (DF)
  3. CETUXIMAB (CETUXIMAB) [Suspect]
     Indication: METASTASES TO LIVER
     Dosage: (DF)
  4. LEUCOVORIN CALCIUM [Suspect]
     Indication: METASTASES TO LIVER
     Dosage: (DF)

REACTIONS (1)
  - VENOOCCLUSIVE LIVER DISEASE [None]
